FAERS Safety Report 8879705 (Version 2)
Quarter: 2013Q2

REPORT INFORMATION
  Report Type: Spontaneous
  Country: US (occurrence: None)
  Receive Date: 20120426
  Receipt Date: 20121031
  Transmission Date: 20140414
  Serious: Yes (Other)
  Sender: FDA-Public Use
  Company Number: PHEH2012US001663

PATIENT
  Age: 29 Year
  Sex: Female

DRUGS (1)
  1. GILENYA [Suspect]
     Indication: RELAPSING-REMITTING MULTIPLE SCLEROSIS
     Route: 048
     Dates: start: 20111118, end: 20120117

REACTIONS (11)
  - Palpitations [None]
  - Visual impairment [None]
  - Blood glucose fluctuation [None]
  - Fatigue [None]
  - Vomiting [None]
  - Depression [None]
  - Dizziness [None]
  - Vision blurred [None]
  - Headache [None]
  - Migraine [None]
  - Back pain [None]
